FAERS Safety Report 5183869-5 (Version None)
Quarter: 2006Q4

REPORT INFORMATION
  Report Type: 
  Country: None (occurrence: None)
  Receive Date: 20061220
  Receipt Date: 20060220
  Transmission Date: 20070319
  Serious: No
  Sender: FDA-Public Use
  Company Number: US-GLAXOSMITHKLINE-A0594750A

PATIENT

DRUGS (3)
  1. NICODERM CQ [Suspect]
     Dates: start: 20060215
  2. NICODERM CQ [Suspect]
  3. NICODERM CQ [Suspect]

REACTIONS (5)
  - APPLICATION SITE ERYTHEMA [None]
  - FEELING HOT [None]
  - NICOTINE DEPENDENCE [None]
  - PAIN IN EXTREMITY [None]
  - SENSORY DISTURBANCE [None]
